FAERS Safety Report 9867637 (Version 1)
Quarter: 2014Q1

REPORT INFORMATION
  Report Type: Spontaneous
  Country: US (occurrence: None)
  Receive Date: 20140203
  Receipt Date: 20140203
  Transmission Date: 20141002
  Serious: No
  Sender: FDA-Public Use
  Company Number: None

PATIENT
  Sex: Female

DRUGS (8)
  1. ORENCIA [Suspect]
     Indication: RHEUMATOID ARTHRITIS
     Dosage: ONE SYRINGE ONCE WEEKLY S.C.
     Dates: start: 20130904
  2. PREDNISONE [Concomitant]
  3. VITAMIN D [Concomitant]
  4. NEURONTID [Concomitant]
  5. PANTOPRAZOLE [Concomitant]
  6. RECLAST [Concomitant]
  7. VICODIN [Concomitant]
  8. SYNTHROID [Concomitant]

REACTIONS (2)
  - Nausea [None]
  - Fatigue [None]
